FAERS Safety Report 7871882-6 (Version None)
Quarter: 2011Q4

REPORT INFORMATION
  Report Type: 
  Country: None (occurrence: None)
  Receive Date: 20111027
  Receipt Date: 20111012
  Transmission Date: 20120403
  Serious: Yes (Hospitalization, Congenital Anomaly)
  Sender: FDA-Public Use
  Company Number: VAL_00638_2011

PATIENT
  Age: 1 Day
  Sex: Female
  Weight: 0.5 kg

DRUGS (2)
  1. ROCALTROL [Suspect]
     Indication: PRODUCT USED FOR UNKNOWN INDICATION
     Dosage: (DF TRANSPLACENTAL)
     Route: 064
  2. LEVOTHYROXINE SODIUM [Concomitant]

REACTIONS (23)
  - BLOOD PRESSURE DECREASED [None]
  - WHITE BLOOD CELL COUNT DECREASED [None]
  - DYSPEPSIA [None]
  - LARYNGOMALACIA [None]
  - CAESAREAN SECTION [None]
  - PLATELET COUNT DECREASED [None]
  - ANAEMIA NEONATAL [None]
  - LARYNGEAL CLEFT [None]
  - PREMATURE BABY [None]
  - CIRCULATORY FAILURE NEONATAL [None]
  - ASPIRATION [None]
  - APGAR SCORE LOW [None]
  - APLASIA [None]
  - LOW BIRTH WEIGHT BABY [None]
  - MATERNAL DRUGS AFFECTING FOETUS [None]
  - VOMITING NEONATAL [None]
  - DYSPHAGIA [None]
  - SKIN OEDEMA [None]
  - HYPOGLYCAEMIA NEONATAL [None]
  - INFLAMMATION [None]
  - POOR SUCKING REFLEX [None]
  - SEPSIS NEONATAL [None]
  - POOR WEIGHT GAIN NEONATAL [None]
